FAERS Safety Report 5633628-1 (Version None)
Quarter: 2008Q1

REPORT INFORMATION
  Report Type: 
  Country: None (occurrence: None)
  Receive Date: 20080221
  Receipt Date: 20080213
  Transmission Date: 20080703
  Serious: Yes (Hospitalization, Other)
  Sender: FDA-Public Use
  Company Number: HQWYE312625SEP07

PATIENT
  Sex: Male

DRUGS (7)
  1. TACROLIMUS [Suspect]
     Indication: PROPHYLAXIS AGAINST TRANSPLANT REJECTION
     Route: 048
     Dates: start: 20060629
  2. RAMIPRIL [Concomitant]
     Indication: HYPERTENSION
     Dosage: UNSPECIFIED
  3. PANTOZOL [Concomitant]
     Indication: PROPHYLAXIS
     Dosage: UNSPECIFIED
  4. URSO FALK [Concomitant]
     Dosage: UNSPECIFIED
  5. INSULIN [Concomitant]
     Indication: TYPE 1 DIABETES MELLITUS
     Dosage: UNSPECIFIED
  6. CELLCEPT [Concomitant]
     Indication: PROPHYLAXIS AGAINST TRANSPLANT REJECTION
     Dosage: UNSPECIFIED
  7. BISOPROLOL FUMARATE [Concomitant]
     Indication: HYPERTENSION
     Dosage: UNSPECIFIED

REACTIONS (1)
  - METASTASES TO BONE [None]
